FAERS Safety Report 9044665 (Version 1)
Quarter: 2013Q1

REPORT INFORMATION
  Report Type: Report from Study
  Country: US (occurrence: US)
  Receive Date: 20130130
  Receipt Date: 20130130
  Transmission Date: 20140127
  Serious: No
  Sender: FDA-Public Use
  Company Number: US-ABBOTT-12P-163-0963529-00

PATIENT
  Age: 30 Year
  Sex: Male

DRUGS (5)
  1. HUMIRA 40 MG/0.8 ML PEN [Suspect]
     Indication: CROHN^S DISEASE
     Dates: start: 20120410
  2. OXYCODONE [Concomitant]
     Indication: PAIN
     Dosage: 10/650MG 4 TIMES A DAY AS NEEDED
  3. ZOFRAN [Concomitant]
     Indication: NAUSEA
  4. TRAZODONE [Concomitant]
     Indication: INSOMNIA
  5. WELLBUTRIN [Concomitant]
     Indication: DEPRESSION

REACTIONS (1)
  - Arthralgia [Not Recovered/Not Resolved]
